FAERS Safety Report 7855594-0 (Version None)
Quarter: 2011Q4

REPORT INFORMATION
  Report Type: 
  Country: None (occurrence: None)
  Receive Date: 20111026
  Receipt Date: 20111011
  Transmission Date: 20120403
  Serious: Yes (Other)
  Sender: FDA-Public Use
  Company Number: ES-WATSON-2011-17267

PATIENT
  Age: 27 Year
  Sex: Male

DRUGS (1)
  1. SULFASALAZINE [Suspect]
     Indication: PATELLOFEMORAL PAIN SYNDROME

REACTIONS (3)
  - ANTIPHOSPHOLIPID SYNDROME [None]
  - HUMAN HERPESVIRUS 6 INFECTION [None]
  - DRUG RASH WITH EOSINOPHILIA AND SYSTEMIC SYMPTOMS [None]
